FAERS Safety Report 8861820 (Version 1)
Quarter: 2012Q4

REPORT INFORMATION
  Report Type: 
  Country: US (occurrence: US)
  Receive Date: 20121025
  Receipt Date: 20121025
  Transmission Date: 20130627
  Serious: No
  Sender: FDA-Public Use
  Company Number: US-AMGEN-USASP2012022283

PATIENT
  Age: 62 Year
  Sex: Male

DRUGS (5)
  1. ENBREL [Suspect]
     Indication: PRODUCT USED FOR UNKNOWN INDICATION
     Dosage: 50 mg, qwk
     Route: 058
  2. WARFARIN [Concomitant]
     Dosage: 5 mg, UNK
  3. METOPROLOL [Concomitant]
     Dosage: 25 mg, UNK
  4. LISINOPRIL [Concomitant]
     Dosage: 20 mg, UNK
  5. SIMVASTATIN [Concomitant]
     Dosage: 20 mg, UNK

REACTIONS (8)
  - Dyspnoea [Unknown]
  - Sinus congestion [Unknown]
  - Nasal discharge discolouration [Unknown]
  - Epistaxis [Unknown]
  - Increased tendency to bruise [Unknown]
  - Arthritis [Unknown]
  - Arthropathy [Unknown]
  - Photosensitivity reaction [Unknown]
